FAERS Safety Report 5392130-5 (Version None)
Quarter: 2007Q3

REPORT INFORMATION
  Report Type: 
  Country: None (occurrence: None)
  Receive Date: 20070718
  Receipt Date: 20070718
  Transmission Date: 20080115
  Serious: Yes (Death)
  Sender: FDA-Public Use
  Company Number: None

PATIENT
  Sex: Male
  Weight: 18 kg

DRUGS (7)
  1. ETOPOSIDE [Suspect]
     Indication: NEUROBLASTOMA
     Dosage: 140MG
  2. CISPLATIN [Suspect]
     Indication: NEUROBLASTOMA
     Dosage: 36MG
  3. FILGRASTIM [Suspect]
     Indication: NEUROBLASTOMA
     Dosage: 90MCG
  4. CYCLOPHOSPHAMIDE [Suspect]
     Dosage: 0.36
  5. VINCRISTINE [Suspect]
     Dosage: 1400
  6. DOXORUBICIN HCL [Suspect]
     Dosage: 17
  7. MESNA [Suspect]
     Dosage: 286 MG

REACTIONS (12)
  - CARDIAC FAILURE [None]
  - CYSTITIS HAEMORRHAGIC [None]
  - ENTERITIS [None]
  - GRAFT COMPLICATION [None]
  - IMMUNOSUPPRESSION [None]
  - MULTI-ORGAN FAILURE [None]
  - NEUTROPHIL COUNT DECREASED [None]
  - PLATELET COUNT DECREASED [None]
  - PNEUMONIA ADENOVIRAL [None]
  - PNEUMONIA CYTOMEGALOVIRAL [None]
  - PULMONARY HAEMORRHAGE [None]
  - STEM CELL TRANSPLANT [None]
